FAERS Safety Report 24406432 (Version 1)
Quarter: 2024Q4

REPORT INFORMATION
  Report Type: Spontaneous
  Country: US (occurrence: US)
  Receive Date: 20241007
  Receipt Date: 20241007
  Transmission Date: 20250115
  Serious: No
  Sender: RECKITT BENCKISER
  Company Number: US-Indivior-Limited-INDV-140244-2023

PATIENT
  Age: 32 Year
  Sex: Female

DRUGS (3)
  1. SUBLOCADE [Suspect]
     Active Substance: BUPRENORPHINE
     Indication: Drug dependence
     Dosage: 300 MILLIGRAM, QMO
     Route: 058
     Dates: start: 20230605
  2. SUBLOCADE [Suspect]
     Active Substance: BUPRENORPHINE
     Dosage: 300 MILLIGRAM, QMO
     Route: 023
     Dates: start: 20230707
  3. SUBLOCADE [Suspect]
     Active Substance: BUPRENORPHINE
     Dosage: 300 MILLIGRAM, QMO
     Route: 058
     Dates: start: 20230728

REACTIONS (7)
  - Inappropriate schedule of product administration [Recovered/Resolved]
  - Expulsion of medication [Unknown]
  - Incorrect route of product administration [Recovered/Resolved]
  - Injection site erythema [Unknown]
  - Drug withdrawal syndrome [Unknown]
  - Injection site scab [Unknown]
  - Injection site erosion [Unknown]

NARRATIVE: CASE EVENT DATE: 20230101
